FAERS Safety Report 10175282 (Version 1)
Quarter: 2014Q2

REPORT INFORMATION
  Report Type: Spontaneous
  Country: US (occurrence: US)
  Receive Date: 20140515
  Receipt Date: 20140515
  Transmission Date: 20141212
  Serious: No
  Sender: FDA-Public Use
  Company Number: US-VIVUS-2014V1000201

PATIENT
  Age: 61 Year
  Sex: Female

DRUGS (1)
  1. QSYMIA 7.5MG/46MG [Suspect]
     Indication: WEIGHT CONTROL
     Route: 048
     Dates: start: 2014

REACTIONS (4)
  - Photopsia [Unknown]
  - Pain [Unknown]
  - Dry skin [Unknown]
  - Hypoaesthesia [Unknown]
